FAERS Safety Report 8416094-2 (Version None)
Quarter: 2012Q2

REPORT INFORMATION
  Report Type: 
  Country: None (occurrence: None)
  Receive Date: 20120606
  Receipt Date: 20120525
  Transmission Date: 20120825
  Serious: Yes (Hospitalization)
  Sender: FDA-Public Use
  Company Number: FR-ROCHE-1075038

PATIENT
  Sex: Male

DRUGS (6)
  1. PRASUGREL HYDROCHLORIDE [Suspect]
     Indication: ACUTE MYOCARDIAL INFARCTION
     Dosage: LOADING DOSE
     Route: 048
     Dates: start: 20111211
  2. TENECTEPLASE [Suspect]
     Indication: ACUTE MYOCARDIAL INFARCTION
  3. ENOXAPARIN SODIUM [Suspect]
     Indication: ACUTE MYOCARDIAL INFARCTION
     Dosage: 100 MG BOLUS
     Route: 040
     Dates: start: 20111211, end: 20111211
  4. ENOXAPARIN SODIUM [Suspect]
     Route: 058
     Dates: start: 20111211, end: 20111201
  5. ABCIXIMAB [Concomitant]
     Dosage: 10 GAMMA/KG/MIN INFUSION.
     Route: 042
     Dates: start: 20111211, end: 20111201
  6. ABCIXIMAB [Concomitant]
     Dosage: 25 MG/KG BOLUS, 10 MG BOLUS
     Route: 042
     Dates: start: 20111211, end: 20111211

REACTIONS (1)
  - HAEMATEMESIS [None]
